FAERS Safety Report 5105126-5 (Version None)
Quarter: 2006Q3

REPORT INFORMATION
  Report Type: 
  Country: None (occurrence: None)
  Receive Date: 20060911
  Receipt Date: 20060828
  Transmission Date: 20061208
  Serious: Yes (Other)
  Sender: FDA-Public Use
  Company Number: 2006104844

PATIENT
  Sex: Male

DRUGS (2)
  1. VIAGRA [Suspect]
     Indication: ERECTILE DYSFUNCTION
     Dosage: 100 MG (100 MG, AS NECESSARY), ORAL
     Route: 048
  2. LIPITOR [Concomitant]

REACTIONS (7)
  - DRUG INEFFECTIVE [None]
  - EYE SWELLING [None]
  - FATIGUE [None]
  - FLUSHING [None]
  - OCULAR VASCULAR DISORDER [None]
  - THROMBOSIS [None]
  - VISION BLURRED [None]
